FAERS Safety Report 7951569-1 (Version None)
Quarter: 2011Q4

REPORT INFORMATION
  Report Type: 
  Country: None (occurrence: None)
  Receive Date: 20111201
  Receipt Date: 20111128
  Transmission Date: 20120403
  Serious: Yes (Other)
  Sender: FDA-Public Use
  Company Number: US-PFIZER INC-2011221387

PATIENT
  Sex: Female

DRUGS (4)
  1. LIPITOR [Concomitant]
     Indication: BLOOD CHOLESTEROL INCREASED
     Dosage: UNK
     Dates: start: 20000101
  2. ATACAND [Concomitant]
     Indication: HYPERTENSION
     Dosage: UNK
     Dates: start: 19880101, end: 20110501
  3. CHANTIX [Suspect]
     Indication: SMOKING CESSATION THERAPY
     Dosage: 1 MG, UNK
     Dates: start: 20070921, end: 20071116
  4. AMBIEN [Concomitant]
     Indication: INSOMNIA
     Dosage: UNK
     Dates: start: 20050101

REACTIONS (10)
  - INSOMNIA [None]
  - NIGHTMARE [None]
  - PANIC ATTACK [None]
  - DEPRESSION [None]
  - SUICIDAL IDEATION [None]
  - AGGRESSION [None]
  - MENTAL DISORDER [None]
  - ANXIETY [None]
  - AMNESIA [None]
  - TREMOR [None]
